FAERS Safety Report 9652016 (Version 1)
Quarter: 2013Q4

REPORT INFORMATION
  Report Type: Spontaneous
  Country: CA (occurrence: None)
  Receive Date: 20131025
  Receipt Date: 20131025
  Transmission Date: 20140711
  Serious: No
  Sender: FDA-Public Use
  Company Number: 2013-002199

PATIENT
  Age: 63 Year
  Sex: Female
  Weight: 66.2 kg

DRUGS (7)
  1. ACTONEL [Suspect]
     Route: 048
     Dates: start: 200903, end: 201202
  2. FOSAMAX [Suspect]
     Dates: start: 200902, end: 200903
  3. RISEDRONATE SODIUM [Suspect]
     Route: 048
     Dates: start: 2008
  4. GLUCOSAMINE (GLUCOSAMINE) [Concomitant]
  5. VITAMIN D/00318501/COLECALCIFEROL [Concomitant]
  6. INDERAL LA (PROPANOLOL HYDROCHLORIDE) [Concomitant]
  7. MAXALT/01406501/(RIZATRIPTAN) [Concomitant]

REACTIONS (4)
  - Plasmacytoma [None]
  - Chest pain [None]
  - Swelling [None]
  - Malaise [None]
